FAERS Safety Report 5209466-0 (Version None)
Quarter: 2007Q1

REPORT INFORMATION
  Report Type: 
  Country: None (occurrence: None)
  Receive Date: 20070111
  Receipt Date: 20070103
  Transmission Date: 20070707
  Serious: Yes (Life-Threatening, Hospitalization)
  Sender: FDA-Public Use
  Company Number: 2007BI000276

PATIENT
  Age: 45 Year
  Sex: Female
  Weight: 72 kg

DRUGS (2)
  1. AVONEX [Suspect]
     Indication: DRUG USE FOR UNKNOWN INDICATION
     Dosage: QW; IM
     Route: 030
     Dates: start: 20051101, end: 20051127
  2. MITOXANTRONE [Concomitant]

REACTIONS (1)
  - ACUTE PROMYELOCYTIC LEUKAEMIA [None]
